FAERS Safety Report 5853398-1 (Version None)
Quarter: 2008Q3

REPORT INFORMATION
  Report Type: 
  Country: None (occurrence: None)
  Receive Date: 20080820
  Receipt Date: 20060809
  Transmission Date: 20090109
  Serious: Yes (Death)
  Sender: FDA-Public Use
  Company Number: US024204

PATIENT
  Age: 71 Year
  Sex: Male
  Weight: 83 kg

DRUGS (5)
  1. TRISENOX [Suspect]
     Indication: MYELODYSPLASTIC SYNDROME
     Dosage: 21 MG TWICE WEEKLY INTRAVENOUS DRIP
     Route: 041
     Dates: start: 20060206
  2. ASCORBIC ACID [Concomitant]
  3. ONCO-CARBIDE [Concomitant]
  4. PURINETHOL [Concomitant]
  5. VINCRISTINE [Concomitant]

REACTIONS (4)
  - CACHEXIA [None]
  - DISEASE PROGRESSION [None]
  - DYSPNOEA [None]
  - MYELODYSPLASTIC SYNDROME [None]
